FAERS Safety Report 19292668 (Version 1)
Quarter: 2021Q2

REPORT INFORMATION
  Report Type: Spontaneous
  Country: US (occurrence: US)
  Receive Date: 20210521
  Receipt Date: 20210521
  Transmission Date: 20210717
  Serious: Yes (Hospitalization)
  Sender: FDA-Public Use
  Company Number: None

PATIENT
  Age: 31 Year
  Sex: Female
  Weight: 94.23 kg

DRUGS (7)
  1. DEXAMETHASONE INJ 6MG [Concomitant]
     Dates: start: 20210506, end: 20210506
  2. VEKLURY [Suspect]
     Active Substance: REMDESIVIR
     Indication: COVID-19
     Route: 040
     Dates: start: 20210506, end: 20210509
  3. ALBUTEROL CFC FREE INHALER 90 [Concomitant]
     Dates: start: 20210506, end: 20210506
  4. AZITHROMYCIN 500MG [Concomitant]
     Active Substance: AZITHROMYCIN
     Dates: start: 20210506, end: 20210506
  5. DICYCLOMINE 20MG [Concomitant]
     Dates: start: 20210506, end: 20210506
  6. AZITHROMYCIN 500MG [Concomitant]
     Active Substance: AZITHROMYCIN
     Dates: start: 20210507, end: 20210512
  7. CEFTRIAXONE IV 1000MG [Concomitant]
     Dates: start: 20210507, end: 20210514

REACTIONS (2)
  - Aspartate aminotransferase increased [None]
  - Alanine aminotransferase increased [None]

NARRATIVE: CASE EVENT DATE: 20210510
